FAERS Safety Report 21462364 (Version 1)
Quarter: 2022Q4

REPORT INFORMATION
  Report Type: Other
  Country: US (occurrence: None)
  Receive Date: 20221016
  Receipt Date: 20221016
  Transmission Date: 20230112
  Serious: Yes (Other)
  Sender: FDA-Public Use
  Company Number: US-ROCHE-3198564

PATIENT

DRUGS (4)
  1. ALECTINIB [Suspect]
     Active Substance: ALECTINIB
     Indication: Adenocarcinoma
     Route: 065
  2. ERLOTINIB [Suspect]
     Active Substance: ERLOTINIB
     Indication: Adenocarcinoma
     Route: 065
  3. ERLOTINIB [Suspect]
     Active Substance: ERLOTINIB
     Route: 065
  4. CRIZOTINIB [Suspect]
     Active Substance: CRIZOTINIB
     Indication: Adenocarcinoma
     Route: 065

REACTIONS (4)
  - Metastases to central nervous system [Recovering/Resolving]
  - Lung disorder [Unknown]
  - EGFR gene mutation [Unknown]
  - Drug resistance [Unknown]
